FAERS Safety Report 22908984 (Version 2)
Quarter: 2024Q4

REPORT INFORMATION
  Report Type: Report from Study
  Country: BR (occurrence: BR)
  Receive Date: 20230905
  Receipt Date: 20241105
  Transmission Date: 20250114
  Serious: Yes (Hospitalization)
  Sender: BIOGEN
  Company Number: BR-BIOGEN-2023BI01224037

PATIENT
  Age: 39 Year
  Sex: Female
  Weight: 85 kg

DRUGS (2)
  1. TYSABRI [Suspect]
     Active Substance: NATALIZUMAB
     Indication: Multiple sclerosis
     Route: 050
  2. TYSABRI [Suspect]
     Active Substance: NATALIZUMAB
     Route: 050
     Dates: start: 2020

REACTIONS (2)
  - Multiple sclerosis relapse [Recovered/Resolved with Sequelae]
  - Product dose omission in error [Unknown]

NARRATIVE: CASE EVENT DATE: 20230328
